FAERS Safety Report 4471011-5 (Version None)
Quarter: 2004Q4

REPORT INFORMATION
  Report Type: 
  Country: None (occurrence: None)
  Receive Date: 20041011
  Receipt Date: 20040930
  Transmission Date: 20050328
  Serious: Yes (Other)
  Sender: FDA-Public Use
  Company Number: FR-ROCHE-381750

PATIENT
  Age: 27 Year
  Sex: Female

DRUGS (5)
  1. NICARDIPINE HCL [Suspect]
     Indication: PREMATURE LABOUR
     Route: 042
  2. NACL [Concomitant]
     Route: 042
  3. KCL TAB [Concomitant]
     Route: 042
  4. GLUCOSE [Concomitant]
     Route: 042
  5. BETAMETHASONE [Concomitant]
     Dosage: INDICATION FOETAL LUNG DEVELOPMENT.
     Route: 042

REACTIONS (6)
  - BLOOD PH INCREASED [None]
  - BLOOD PRESSURE SYSTOLIC DECREASED [None]
  - DRUG EXPOSURE DURING PREGNANCY [None]
  - PULMONARY OEDEMA [None]
  - SINUS TACHYCARDIA [None]
  - TACHYCARDIA [None]
